FAERS Safety Report 6005527-7 (Version None)
Quarter: 2008Q4

REPORT INFORMATION
  Report Type: 
  Country: None (occurrence: None)
  Receive Date: 20081215
  Receipt Date: 20081204
  Transmission Date: 20090506
  Serious: No
  Sender: FDA-Public Use
  Company Number: 2008AP003329

PATIENT
  Sex: 0

DRUGS (3)
  1. RISPERIDONE [Suspect]
     Indication: BIPOLAR I DISORDER
     Dosage: 4 MG, TRPL
     Route: 064
     Dates: start: 20080325, end: 20080501
  2. LORAZEPAM [Concomitant]
  3. SERTRALINE [Concomitant]

REACTIONS (2)
  - ABDOMINAL WALL ANOMALY [None]
  - MATERNAL DRUGS AFFECTING FOETUS [None]
